FAERS Safety Report 25361112 (Version 1)
Quarter: 2025Q2

REPORT INFORMATION
  Report Type: Spontaneous
  Country: US (occurrence: US)
  Receive Date: 20250527
  Receipt Date: 20250527
  Transmission Date: 20250717
  Serious: No
  Sender: ALKEM
  Company Number: US-ALKEM LABORATORIES LIMITED-US-ALKEM-2025-02792

PATIENT
  Age: 41 Year
  Sex: Female

DRUGS (14)
  1. TACROLIMUS [Suspect]
     Active Substance: TACROLIMUS
     Indication: Conjunctivitis
     Dosage: UNK, QD (IN LEFT EYE DAILY) (FOR 1 YEAR)
     Route: 061
  2. TACROLIMUS [Suspect]
     Active Substance: TACROLIMUS
     Indication: Benign neoplasm of conjunctiva
     Dosage: UNK, OD (ONCE DAILY) (RESUMED USE)
     Route: 061
  3. TOBRAMYCIN [Suspect]
     Active Substance: TOBRAMYCIN
     Indication: Conjunctivitis
     Route: 061
  4. TOBRAMYCIN [Suspect]
     Active Substance: TOBRAMYCIN
     Indication: Benign neoplasm of conjunctiva
  5. AZITHROMYCIN [Suspect]
     Active Substance: AZITHROMYCIN
     Indication: Conjunctivitis
     Route: 061
  6. AZITHROMYCIN [Suspect]
     Active Substance: AZITHROMYCIN
     Indication: Benign neoplasm of conjunctiva
  7. DOXYCYCLINE [Suspect]
     Active Substance: DOXYCYCLINE
     Indication: Conjunctivitis
     Route: 048
  8. DOXYCYCLINE [Suspect]
     Active Substance: DOXYCYCLINE
     Indication: Benign neoplasm of conjunctiva
  9. GENTEAL MILD [Suspect]
     Active Substance: HYPROMELLOSE 2910 (4000 MPA.S)
     Indication: Conjunctivitis
     Route: 065
  10. GENTEAL MILD [Suspect]
     Active Substance: HYPROMELLOSE 2910 (4000 MPA.S)
     Indication: Benign neoplasm of conjunctiva
  11. MURO 128 [Suspect]
     Active Substance: SODIUM CHLORIDE
     Indication: Conjunctivitis
     Route: 065
  12. MURO 128 [Suspect]
     Active Substance: SODIUM CHLORIDE
     Indication: Benign neoplasm of conjunctiva
  13. VALTREX [Suspect]
     Active Substance: VALACYCLOVIR HYDROCHLORIDE
     Indication: Conjunctivitis
     Route: 048
  14. VALTREX [Suspect]
     Active Substance: VALACYCLOVIR HYDROCHLORIDE
     Indication: Benign neoplasm of conjunctiva

REACTIONS (2)
  - Therapy non-responder [Unknown]
  - Off label use [Unknown]
